FAERS Safety Report 15536716 (Version 1)
Quarter: 2018Q4

REPORT INFORMATION
  Report Type: Spontaneous
  Country: US (occurrence: US)
  Receive Date: 20181015
  Receipt Date: 20181015
  Transmission Date: 20190205
  Serious: No
  Sender: FDA-Public Use
  Company Number: None

PATIENT
  Age: 41 Year
  Sex: Female
  Weight: 81 kg

DRUGS (1)
  1. AMPICILLIN 2GM FRESENIUS [Suspect]
     Active Substance: AMPICILLIN
     Indication: SEPSIS
     Route: 042
     Dates: start: 20181008, end: 20181010

REACTIONS (3)
  - Infusion related reaction [None]
  - Chest pain [None]
  - Feeling cold [None]

NARRATIVE: CASE EVENT DATE: 20181010
